FAERS Safety Report 5584669-4 (Version None)
Quarter: 2008Q1

REPORT INFORMATION
  Report Type: 
  Country: None (occurrence: None)
  Receive Date: 20080108
  Receipt Date: 20071227
  Transmission Date: 20080703
  Serious: Yes (Other)
  Sender: FDA-Public Use
  Company Number: US-PFIZER INC-2007100892

PATIENT
  Age: 63 Year
  Sex: Female

DRUGS (1)
  1. CHANTIX [Suspect]
     Indication: SMOKING CESSATION THERAPY

REACTIONS (7)
  - ABNORMAL DREAMS [None]
  - ANTISOCIAL BEHAVIOUR [None]
  - DEPRESSION [None]
  - FEAR [None]
  - IMPAIRED WORK ABILITY [None]
  - MOOD ALTERED [None]
  - MOOD SWINGS [None]
